FAERS Safety Report 6275656-1 (Version None)
Quarter: 2009Q3

REPORT INFORMATION
  Report Type: 
  Country: None (occurrence: None)
  Receive Date: 20090721
  Receipt Date: 20090716
  Transmission Date: 20100115
  Serious: Yes (Death)
  Sender: FDA-Public Use
  Company Number: BE-ABBOTT-09P-013-0585624-00

PATIENT
  Sex: Male

DRUGS (1)
  1. TEVETEN [Suspect]
     Indication: HYPERTENSION
     Route: 048
     Dates: start: 20080730, end: 20081128

REACTIONS (1)
  - ROAD TRAFFIC ACCIDENT [None]
